FAERS Safety Report 4906435-2 (Version None)
Quarter: 2006Q1

REPORT INFORMATION
  Report Type: 
  Country: None (occurrence: None)
  Receive Date: 20060206
  Receipt Date: 20060120
  Transmission Date: 20060701
  Serious: No
  Sender: FDA-Public Use
  Company Number: TRP_0693_2006

PATIENT
  Age: 53 Year
  Sex: Female
  Weight: 111.1313 kg

DRUGS (5)
  1. RIBASPHERE [Suspect]
     Indication: HEPATITIS C
     Dosage: DF PO
     Route: 048
     Dates: start: 20050809
  2. PEG-INTRON/PEGINTERFERON ALFA-2B/SCHERING-PLOUGH / REDIPEN [Suspect]
     Indication: HEPATITIS C
     Dosage: DF  SC
     Route: 058
     Dates: start: 20050809
  3. CELEBREX [Concomitant]
  4. IBUPROFEN [Concomitant]
  5. ZOLOFT [Concomitant]

REACTIONS (3)
  - ANAEMIA [None]
  - PLATELET COUNT DECREASED [None]
  - WHITE BLOOD CELL COUNT DECREASED [None]
